FAERS Safety Report 8079235-5 (Version None)
Quarter: 2012Q1

REPORT INFORMATION
  Report Type: 
  Country: None (occurrence: None)
  Receive Date: 20120128
  Receipt Date: 20110815
  Transmission Date: 20120608
  Serious: No
  Sender: FDA-Public Use
  Company Number: US-ABBOTT-11P-163-0847330-00

PATIENT
  Sex: Male
  Weight: 88.53 kg

DRUGS (8)
  1. XANAX [Concomitant]
     Indication: STRESS
  2. HUMIRA [Suspect]
     Indication: CROHN'S DISEASE
     Route: 058
     Dates: start: 20050101, end: 20050101
  3. HUMIRA [Suspect]
     Route: 058
     Dates: start: 20090101
  4. REMICADE [Concomitant]
     Indication: PRODUCT USED FOR UNKNOWN INDICATION
  5. VITAMIN B-12 [Concomitant]
     Indication: ANAEMIA
  6. PREDNISONE TAB [Suspect]
     Indication: CROHN'S DISEASE
     Dates: start: 20040101, end: 20060101
  7. AMBIEN [Concomitant]
     Indication: SLEEP DISORDER
     Dosage: AT BEDTIME
  8. CELEXA [Concomitant]
     Indication: DEPRESSION
     Dosage: ONCE DAILY AT BEDTIME

REACTIONS (7)
  - WEIGHT DECREASED [None]
  - ARTHRALGIA [None]
  - DECREASED APPETITE [None]
  - INJECTION SITE HAEMATOMA [None]
  - HEADACHE [None]
  - CROHN'S DISEASE [None]
  - PALLOR [None]
